FAERS Safety Report 5695745-X (Version None)
Quarter: 2008Q2

REPORT INFORMATION
  Report Type: 
  Country: None (occurrence: None)
  Receive Date: 20080407
  Receipt Date: 20080325
  Transmission Date: 20081010
  Serious: Yes (Death, Hospitalization, Other)
  Sender: FDA-Public Use
  Company Number: FR-ELI_LILLY_AND_COMPANY-FR200803006052

PATIENT
  Age: 71 Year
  Sex: Male
  Weight: 88 kg

DRUGS (3)
  1. PEMETREXED [Suspect]
     Indication: LUNG NEOPLASM MALIGNANT
     Dosage: 1000 MG, OTHER
     Route: 042
     Dates: start: 20080117, end: 20080207
  2. FOLIC ACID [Concomitant]
     Indication: VITAMIN SUPPLEMENTATION
     Dosage: UNK, UNKNOWN
     Route: 065
  3. VITAMIN B-12 [Concomitant]
     Indication: VITAMIN SUPPLEMENTATION
     Dosage: UNK, UNKNOWN
     Route: 065

REACTIONS (5)
  - ANAEMIA [None]
  - ERYSIPELAS [None]
  - NEUTROPENIA [None]
  - RESPIRATORY ARREST [None]
  - THROMBOCYTOPENIA [None]
